FAERS Safety Report 17479071 (Version 1)
Quarter: 2020Q1

REPORT INFORMATION
  Report Type: Spontaneous
  Country: ES (occurrence: ES)
  Receive Date: 20200228
  Receipt Date: 20200228
  Transmission Date: 20200409
  Serious: Yes (Other)
  Sender: FDA-Public Use
  Company Number: ES-BAUSCH-BL-2020-005589

PATIENT
  Age: 71 Year
  Sex: Female

DRUGS (4)
  1. CLINDAMYCIN. [Suspect]
     Active Substance: CLINDAMYCIN
     Indication: INJECTION SITE INDURATION
     Route: 065
  2. CLINDAMYCIN. [Suspect]
     Active Substance: CLINDAMYCIN
     Indication: INJECTION SITE PAIN
  3. TALTZ [Suspect]
     Active Substance: IXEKIZUMAB
     Indication: PSORIASIS
     Route: 065
  4. CLINDAMYCIN. [Suspect]
     Active Substance: CLINDAMYCIN
     Indication: INJECTION SITE ERYTHEMA

REACTIONS (4)
  - Injection site induration [Unknown]
  - Toxic skin eruption [Unknown]
  - Injection site erythema [Unknown]
  - Injection site pain [Unknown]
